FAERS Safety Report 7095383-0 (Version None)
Quarter: 2010Q4

REPORT INFORMATION
  Report Type: 
  Country: None (occurrence: None)
  Receive Date: 20101111
  Receipt Date: 20101103
  Transmission Date: 20110411
  Serious: No
  Sender: FDA-Public Use
  Company Number: US-B.I. PHARMACEUTICALS,INC./RIDGEFIELD-2010-BP-12364BP

PATIENT
  Sex: Female

DRUGS (4)
  1. SPIRIVA [Suspect]
     Indication: ASTHMA
     Dosage: 18 MCG
     Route: 055
     Dates: start: 20101102
  2. CIPRO [Concomitant]
     Indication: BRONCHITIS
     Dosage: 1000 MG
     Route: 048
     Dates: start: 20101030
  3. PREDNISONE [Concomitant]
     Indication: ASTHMA
     Dosage: 20 MG
     Route: 048
     Dates: start: 20101102
  4. PROAIR HFA [Concomitant]
     Indication: ASTHMA
     Route: 055
     Dates: start: 20101102

REACTIONS (1)
  - ERYTHEMA [None]
